FAERS Safety Report 10494250 (Version 2)
Quarter: 2014Q4

REPORT INFORMATION
  Report Type: Spontaneous
  Country: US (occurrence: US)
  Receive Date: 20141003
  Receipt Date: 20141030
  Transmission Date: 20150528
  Serious: Yes (Hospitalization, Other)
  Sender: FDA-Public Use
  Company Number: US-GLAXOSMITHKLINE-A1090648A

PATIENT
  Age: 72 Year
  Sex: Male

DRUGS (11)
  1. ALOPURINOL [Concomitant]
     Active Substance: ALLOPURINOL
  2. AMLODIPINE [Concomitant]
     Active Substance: AMLODIPINE BESYLATE
  3. ASPIRIN. [Concomitant]
     Active Substance: ASPIRIN
  4. FOSINOPRIL [Concomitant]
     Active Substance: FOSINOPRIL
  5. CYCLOBENZAPRINE [Concomitant]
     Active Substance: CYCLOBENZAPRINE
  6. SULFASALAZINE. [Concomitant]
     Active Substance: SULFASALAZINE
  7. ADVAIR HFA [Suspect]
     Active Substance: FLUTICASONE PROPIONATE\SALMETEROL XINAFOATE
     Indication: EMPHYSEMA
  8. KLOR-CON [Concomitant]
     Active Substance: POTASSIUM CHLORIDE
  9. ADVAIR HFA [Suspect]
     Active Substance: FLUTICASONE PROPIONATE\SALMETEROL XINAFOATE
     Indication: CHRONIC OBSTRUCTIVE PULMONARY DISEASE
     Dosage: 1 PUFF(S), BID
     Route: 055
     Dates: end: 20140808
  10. FUROSEMIDE. [Concomitant]
     Active Substance: FUROSEMIDE
  11. PROBIOTIC [Concomitant]
     Active Substance: PROBIOTICS NOS

REACTIONS (4)
  - Cardiac operation [Unknown]
  - Pulmonary mass [Recovering/Resolving]
  - Pulmonary mycosis [Recovering/Resolving]
  - Gout [Unknown]

NARRATIVE: CASE EVENT DATE: 201306
